FAERS Safety Report 21240318 (Version 1)
Quarter: 2022Q3

REPORT INFORMATION
  Report Type: Spontaneous
  Country: US (occurrence: None)
  Receive Date: 20220822
  Receipt Date: 20220822
  Transmission Date: 20221026
  Serious: Yes (Other)
  Sender: FDA-Public Use
  Company Number: None

PATIENT
  Age: 65 Year
  Sex: Female
  Weight: 83.25 kg

DRUGS (4)
  1. PAXLOVID [Suspect]
     Active Substance: NIRMATRELVIR\RITONAVIR
     Indication: COVID-19
     Dosage: OTHER QUANTITY : 3 TABLET(S);?FREQUENCY : TWICE A DAY;?
     Route: 048
     Dates: start: 20220820, end: 20220822
  2. VITAMIN C [Concomitant]
     Active Substance: ASCORBIC ACID
  3. Vitamin D3 in winter months [Concomitant]
  4. Women^s Alive multi vit [Concomitant]

REACTIONS (7)
  - Swollen tongue [None]
  - Lip swelling [None]
  - Throat irritation [None]
  - Dysgeusia [None]
  - Cheilitis [None]
  - Lip erythema [None]
  - Paraesthesia oral [None]

NARRATIVE: CASE EVENT DATE: 20220821
